FAERS Safety Report 5459477-5 (Version None)
Quarter: 2007Q3

REPORT INFORMATION
  Report Type: 
  Country: None (occurrence: None)
  Receive Date: 20070919
  Receipt Date: 20070914
  Transmission Date: 20080115
  Serious: Yes (Hospitalization)
  Sender: FDA-Public Use
  Company Number: A0664692A

PATIENT
  Age: 7 Month
  Sex: Female

DRUGS (3)
  1. ADVAIR DISKUS 100/50 [Suspect]
     Indication: ASTHMA
  2. VENTOLIN [Suspect]
     Indication: ASTHMA
  3. THYROID TAB [Suspect]
     Indication: THYROID DISORDER

REACTIONS (5)
  - COLITIS [None]
  - DRUG EXPOSURE VIA BREAST MILK [None]
  - DRUG HYPERSENSITIVITY [None]
  - ECZEMA [None]
  - FOOD ALLERGY [None]
